FAERS Safety Report 4726360-X (Version None)
Quarter: 2005Q3

REPORT INFORMATION
  Report Type: 
  Country: None (occurrence: None)
  Receive Date: 20050725
  Receipt Date: 20050711
  Transmission Date: 20060218
  Serious: Yes (Death, Hospitalization, Other)
  Sender: FDA-Public Use
  Company Number: 2005100256

PATIENT
  Age: 81 Year
  Sex: Female
  Weight: 58 kg

DRUGS (8)
  1. CAMPTOSAR [Suspect]
     Indication: RECTOSIGMOID CANCER
     Dosage: 80 MG/M2 (CYCLICAL), INTRAVENOUS
     Route: 042
     Dates: start: 20040315, end: 20041116
  2. FLUOROURACIL [Concomitant]
  3. CETUXIMAB (CETUXIMAB) [Concomitant]
  4. DEXAMETHASONE [Concomitant]
  5. ATROPINE SULFATE [Concomitant]
  6. ZOFRAN [Concomitant]
  7. CLEMASTINE FUMARATE [Concomitant]
  8. FOLIC ACID [Concomitant]

REACTIONS (7)
  - CIRCULATORY COLLAPSE [None]
  - DIARRHOEA [None]
  - GENERAL PHYSICAL HEALTH DETERIORATION [None]
  - MALIGNANT NEOPLASM PROGRESSION [None]
  - METASTASES TO LIVER [None]
  - TACHYARRHYTHMIA [None]
  - TACHYCARDIA PAROXYSMAL [None]
